FAERS Safety Report 10266574 (Version 1)
Quarter: 2014Q2

REPORT INFORMATION
  Report Type: Spontaneous
  Country: IN (occurrence: IN)
  Receive Date: 20140629
  Receipt Date: 20140629
  Transmission Date: 20141212
  Serious: Yes (Death, Other)
  Sender: FDA-Public Use
  Company Number: PHHY2014IN077003

PATIENT
  Age: 34 Year
  Sex: Male

DRUGS (1)
  1. TACROLIMUS [Suspect]

REACTIONS (6)
  - Bronchopneumonia [Fatal]
  - Thrombotic microangiopathy [Recovered/Resolved]
  - Toxicity to various agents [Unknown]
  - Renal tubular necrosis [Recovered/Resolved]
  - Hepatic infection [Unknown]
  - Hepatic lesion [Unknown]
